FAERS Safety Report 6187801-7 (Version None)
Quarter: 2009Q2

REPORT INFORMATION
  Report Type: 
  Country: None (occurrence: None)
  Receive Date: 20090511
  Receipt Date: 20090511
  Transmission Date: 20091009
  Serious: Yes (Hospitalization)
  Sender: FDA-Public Use
  Company Number: None

PATIENT
  Age: 82 Year
  Sex: Male
  Weight: 77.1115 kg

DRUGS (2)
  1. MORPHINE SULFATE [Suspect]
     Indication: BACK PAIN
     Dosage: 1 TWICE DAILY QTY 60
     Dates: start: 20090415, end: 20090418
  2. HYDROMORPHONE HCL [Suspect]
     Dosage: 1 TABLET EVERY 6 HRS QTY 15
     Dates: start: 20090415

REACTIONS (6)
  - ANOREXIA [None]
  - CHOKING [None]
  - CONFUSIONAL STATE [None]
  - CONSTIPATION [None]
  - RASH [None]
  - VISUAL IMPAIRMENT [None]
